FAERS Safety Report 12550354 (Version 3)
Quarter: 2016Q3

REPORT INFORMATION
  Report Type: Spontaneous
  Country: US (occurrence: US)
  Receive Date: 20160712
  Receipt Date: 20160725
  Transmission Date: 20161109
  Serious: No
  Sender: FDA-Public Use
  Company Number: US-BAYER-2016-129761

PATIENT
  Age: 78 Year
  Sex: Female
  Weight: 56.23 kg

DRUGS (2)
  1. MIRAFIBER SUGAR FREE ORANGE POWDER [Suspect]
     Active Substance: METHYLCELLULOSES
     Dosage: 1 DF, QD
     Route: 048
     Dates: start: 20160628, end: 20160629
  2. MIRALAX [Suspect]
     Active Substance: POLYETHYLENE GLYCOL 3350

REACTIONS (5)
  - Product use issue [None]
  - Abdominal pain upper [Not Recovered/Not Resolved]
  - Frequent bowel movements [Recovered/Resolved]
  - Flatulence [Recovered/Resolved]
  - Abnormal faeces [Recovered/Resolved]

NARRATIVE: CASE EVENT DATE: 20160628
